FAERS Safety Report 6162488-8 (Version None)
Quarter: 2009Q2

REPORT INFORMATION
  Report Type: 
  Country: None (occurrence: None)
  Receive Date: 20090421
  Receipt Date: 20090414
  Transmission Date: 20091009
  Serious: Yes (Other)
  Sender: FDA-Public Use
  Company Number: US-ASTRAZENECA-2009UW09302

PATIENT
  Age: 68 Year
  Sex: Male
  Weight: 96.6 kg

DRUGS (4)
  1. ZOLADEX [Suspect]
     Indication: ILL-DEFINED DISORDER
     Route: 058
     Dates: start: 20070418
  2. ANDROGEL [Suspect]
     Route: 065
     Dates: start: 20070413, end: 20070719
  3. PLACEBO [Suspect]
     Route: 048
     Dates: start: 20070418, end: 20070719
  4. ZOCOR [Concomitant]

REACTIONS (1)
  - HYPOGONADISM [None]
